FAERS Safety Report 9708696 (Version 1)
Quarter: 2013Q4

REPORT INFORMATION
  Report Type: Other
  Country: CN (occurrence: CN)
  Receive Date: 20131125
  Receipt Date: 20131125
  Transmission Date: 20140711
  Serious: Yes (Other)
  Sender: FDA-Public Use
  Company Number: CN-BRISTOL-MYERS SQUIBB COMPANY-19848290

PATIENT
  Age: 60 Year
  Sex: Male

DRUGS (6)
  1. METFORMIN HCL [Suspect]
     Dates: start: 20110804
  2. ATORVASTATIN [Suspect]
     Indication: HYPERLIPIDAEMIA
     Dates: start: 20110804
  3. ASPIRIN [Concomitant]
     Dates: start: 20110804
  4. VALSARTAN [Concomitant]
     Dates: start: 20110804
  5. VITAMIN B1 [Concomitant]
     Dates: start: 20110804
  6. VITAMIN B12 [Concomitant]
     Dates: start: 20110804

REACTIONS (2)
  - Eosinophilia [Recovered/Resolved]
  - Abdominal pain [Unknown]
